FAERS Safety Report 22869684 (Version 2)
Quarter: 2025Q3

REPORT INFORMATION
  Report Type: Report from Study
  Country: EU (occurrence: EU)
  Receive Date: 20230826
  Receipt Date: 20250723
  Transmission Date: 20251020
  Serious: No
  Sender: SANDOZ
  Company Number: EU-SANDOZ-SDZ2023IT019005

PATIENT
  Sex: Female

DRUGS (1)
  1. OMNITROPE [Suspect]
     Active Substance: SOMATROPIN
     Indication: Product used for unknown indication
     Dosage: 0.2 MG, QD
     Route: 065
     Dates: start: 20230418

REACTIONS (2)
  - Discomfort [Unknown]
  - Pain [Unknown]
